FAERS Safety Report 4315630-5 (Version None)
Quarter: 2004Q1

REPORT INFORMATION
  Report Type: 
  Country: None (occurrence: None)
  Receive Date: 20040311
  Receipt Date: 20040209
  Transmission Date: 20041129
  Serious: Yes (Hospitalization)
  Sender: FDA-Public Use
  Company Number: FR-GLAXOSMITHKLINE-B0322520A

PATIENT
  Age: 61 Year
  Sex: Male
  Weight: 56 kg

DRUGS (12)
  1. FORTUM [Suspect]
     Dosage: 1G PER DAY
     Route: 033
     Dates: start: 20031125, end: 20031203
  2. OFLOCET [Suspect]
     Dosage: 200MG PER DAY
     Route: 048
     Dates: start: 20031125, end: 20031203
  3. GENTAMICIN [Concomitant]
     Dosage: 25MG PER DAY
     Route: 033
     Dates: start: 20031125, end: 20031206
  4. VANCOMYCIN [Concomitant]
     Dosage: 1G SINGLE DOSE
     Route: 033
     Dates: start: 20031125, end: 20031125
  5. PROGRAF [Concomitant]
     Dosage: 1MG TWICE PER DAY
     Route: 065
  6. MEDROL [Concomitant]
     Dosage: 4MG PER DAY
     Route: 065
  7. SELOKEN [Concomitant]
     Dosage: 50MG PER DAY
     Route: 065
  8. LASILIX [Concomitant]
     Route: 065
  9. ASPIRIN [Concomitant]
     Route: 065
  10. EUCALCIC [Concomitant]
     Route: 065
  11. DIFFU K [Concomitant]
     Route: 065
  12. FOSAMAX [Concomitant]
     Route: 065

REACTIONS (7)
  - AGGRESSION [None]
  - BLOOD CREATININE INCREASED [None]
  - CONFUSIONAL STATE [None]
  - CONVULSION [None]
  - CREATININE RENAL CLEARANCE DECREASED [None]
  - DELIRIUM [None]
  - MEMORY IMPAIRMENT [None]
